FAERS Safety Report 20833899 (Version 1)
Quarter: 2022Q2

REPORT INFORMATION
  Report Type: Spontaneous
  Country: US (occurrence: None)
  Receive Date: 20220516
  Receipt Date: 20220516
  Transmission Date: 20220721
  Serious: No
  Sender: FDA-Public Use
  Company Number: 2022A170375

PATIENT
  Age: 69 Year
  Sex: Female

DRUGS (1)
  1. BRILINTA [Suspect]
     Active Substance: TICAGRELOR
     Indication: Stent placement
     Route: 048
     Dates: start: 202104, end: 20220429

REACTIONS (2)
  - Chest discomfort [Unknown]
  - Migraine [Recovering/Resolving]

NARRATIVE: CASE EVENT DATE: 20210101
